FAERS Safety Report 5274148-6 (Version None)
Quarter: 2007Q1

REPORT INFORMATION
  Report Type: 
  Country: None (occurrence: None)
  Receive Date: 20070323
  Receipt Date: 20070307
  Transmission Date: 20070707
  Serious: Yes (Other)
  Sender: FDA-Public Use
  Company Number: 2007AP01460

PATIENT
  Age: 11857 Day
  Sex: Female
  Weight: 62 kg

DRUGS (4)
  1. SEROQUEL [Suspect]
     Indication: MAJOR DEPRESSION
     Route: 048
     Dates: start: 20060711
  2. LUVOX [Suspect]
     Indication: DEPRESSION
     Route: 048
     Dates: start: 20000101
  3. LUVOX [Suspect]
     Route: 048
     Dates: start: 20070224, end: 20070224
  4. TRIPHASIL-28 [Concomitant]
     Indication: ORAL CONTRACEPTION
     Route: 048
     Dates: start: 20060301

REACTIONS (2)
  - DRUG EXPOSURE DURING PREGNANCY [None]
  - INTENTIONAL OVERDOSE [None]
